FAERS Safety Report 7331733-5 (Version None)
Quarter: 2011Q1

REPORT INFORMATION
  Report Type: 
  Country: None (occurrence: None)
  Receive Date: 20110304
  Receipt Date: 20110304
  Transmission Date: 20110831
  Serious: Yes (Hospitalization)
  Sender: FDA-Public Use
  Company Number: PHHO2009NL04706

PATIENT
  Sex: Male

DRUGS (5)
  1. TOLBUTAMIDE [Concomitant]
  2. PLACEBO [Suspect]
     Dosage: PLACEBO
     Route: 048
     Dates: start: 20090415
  3. METFORMIN [Concomitant]
     Dosage: UNK
  4. PLACEBO [Suspect]
     Indication: CARCINOID TUMOUR
     Dosage: PLACEBO
     Route: 048
     Dates: start: 20071103, end: 20090406
  5. SANDOSTATIN LAR [Suspect]
     Indication: CARCINOID SYNDROME
     Dosage: UNK
     Route: 048
     Dates: start: 20071103

REACTIONS (4)
  - BLOOD CREATININE INCREASED [None]
  - DIARRHOEA [None]
  - CARCINOID SYNDROME [None]
  - DEHYDRATION [None]
